FAERS Safety Report 7509383-7 (Version None)
Quarter: 2011Q2

REPORT INFORMATION
  Report Type: 
  Country: None (occurrence: None)
  Receive Date: 20110527
  Receipt Date: 20110429
  Transmission Date: 20111010
  Serious: No
  Sender: FDA-Public Use
  Company Number: US-BAYER-2011-041518

PATIENT
  Age: 66 Year
  Sex: Female
  Weight: 89 kg

DRUGS (1)
  1. ALEVE (CAPLET) [Suspect]
     Indication: ANALGESIC THERAPY
     Dosage: 2 DF, BID
     Route: 048
     Dates: start: 20110323, end: 20110426

REACTIONS (4)
  - PRURITUS [None]
  - SWELLING FACE [None]
  - ERYTHEMA [None]
  - SKIN WARM [None]
